FAERS Safety Report 6309402-X (Version None)
Quarter: 2009Q3

REPORT INFORMATION
  Report Type: 
  Country: None (occurrence: None)
  Receive Date: 20090814
  Receipt Date: 20090810
  Transmission Date: 20100115
  Serious: Yes (Death)
  Sender: FDA-Public Use
  Company Number: ID-ROCHE-649448

PATIENT
  Sex: Female

DRUGS (13)
  1. CAPECITABINE [Suspect]
     Route: 048
     Dates: start: 20090504
  2. OXALIPLATIN [Suspect]
     Dosage: DRUG NAME REPORTED AS ELOXATIN
     Route: 041
     Dates: start: 20090504
  3. BLINDED AVE5026 [Concomitant]
     Dosage: DAILY
     Dates: start: 20090504, end: 20090727
  4. RANITIDINE [Concomitant]
     Route: 051
     Dates: start: 20090513, end: 20090516
  5. RANITIDINE [Concomitant]
     Route: 048
     Dates: start: 20090517, end: 20090521
  6. BUSCOPAN [Concomitant]
     Route: 051
     Dates: start: 20090513, end: 20090513
  7. TRAMADOL [Concomitant]
     Route: 051
     Dates: start: 20090513, end: 20090516
  8. CAPTOPRIL [Concomitant]
     Dates: start: 20090529
  9. VITALZYM [Concomitant]
     Dates: start: 20090513, end: 20090513
  10. CEFTRIAXONE [Concomitant]
     Indication: PROPHYLAXIS
     Dates: start: 20090515, end: 20090516
  11. METRONIDAZOLE [Concomitant]
     Indication: PROPHYLAXIS
     Dates: start: 20090515, end: 20090515
  12. FLUOROURACIL [Concomitant]
     Dates: end: 20090415
  13. LEUCOVORIN CALCIUM [Concomitant]
     Dates: end: 20090415

REACTIONS (4)
  - DECREASED APPETITE [None]
  - DEHYDRATION [None]
  - FLUID INTAKE REDUCED [None]
  - HYPOPHAGIA [None]
